FAERS Safety Report 10041040 (Version 2)
Quarter: 2014Q2

REPORT INFORMATION
  Report Type: Spontaneous
  Country: GB (occurrence: GB)
  Receive Date: 20140327
  Receipt Date: 20140508
  Transmission Date: 20141212
  Serious: Yes (Death)
  Sender: FDA-Public Use
  Company Number: GB-PFIZER INC-2014083077

PATIENT
  Age: 3 Decade
  Sex: Female

DRUGS (2)
  1. GABAPENTIN [Suspect]
  2. ATROPISOL [Concomitant]

REACTIONS (2)
  - Overdose [Fatal]
  - Drug abuse [Fatal]
